FAERS Safety Report 9668921 (Version 19)
Quarter: 2021Q3

REPORT INFORMATION
  Report Type: Spontaneous
  Country: GB (occurrence: GB)
  Receive Date: 20131105
  Receipt Date: 20210812
  Transmission Date: 20211014
  Serious: Yes (Life-Threatening, Hospitalization, Disabling, Other)
  Sender: FDA-Public Use
  Company Number: GB-MYLANLABS-2011S1018464

PATIENT
  Age: 31 Year
  Sex: Female
  Weight: 63.5 kg

DRUGS (69)
  1. MIRTAZAPINE. [Interacting]
     Active Substance: MIRTAZAPINE
     Indication: DEPRESSION
     Dosage: 20 MILLIGRAM, TID
     Route: 048
  2. MIRTAZAPINE. [Interacting]
     Active Substance: MIRTAZAPINE
     Dosage: 20 MILLIGRAM, QD
     Route: 065
     Dates: start: 20110525
  3. TRAMADOL. [Interacting]
     Active Substance: TRAMADOL
     Dosage: 5 MG, 4 TIMES A DAY
     Route: 065
     Dates: start: 20110725
  4. CLONAZEPAM. [Interacting]
     Active Substance: CLONAZEPAM
     Dosage: UNK
     Route: 048
     Dates: start: 20110224, end: 20110410
  5. LORAZEPAM. [Interacting]
     Active Substance: LORAZEPAM
     Dosage: 4 MILLIGRAM
     Route: 048
     Dates: start: 20110224, end: 20110410
  6. AMITRIPTYLINE [Interacting]
     Active Substance: AMITRIPTYLINE
     Dosage: AT NIGHT
     Route: 065
  7. DIAZEPAM. [Interacting]
     Active Substance: DIAZEPAM
     Indication: SEROTONIN SYNDROME
     Dosage: 5 MILLIGRAM, QD
     Route: 065
     Dates: start: 20110725
  8. PAROXETINE. [Interacting]
     Active Substance: PAROXETINE
     Indication: DEPRESSION
     Dosage: 40 MILLIGRAM, QD
     Route: 048
     Dates: start: 19990801, end: 20110706
  9. PAROXETINE. [Interacting]
     Active Substance: PAROXETINE
     Dosage: 40 MILLIGRAM, QD
     Route: 048
     Dates: start: 19990801, end: 20110706
  10. PROCYCLIDINE [Interacting]
     Active Substance: PROCYCLIDINE
     Indication: EXTRAPYRAMIDAL DISORDER
     Dosage: 5 MILLIGRAM, TID/15 MILLIGRAM QD
     Route: 048
     Dates: start: 1995, end: 1996
  11. PROCYCLIDINE [Interacting]
     Active Substance: PROCYCLIDINE
     Dosage: UNK
     Route: 065
     Dates: start: 20110415
  12. CODEINE PHOSPHATE HYDRATE [Interacting]
     Active Substance: CODEINE PHOSPHATE
     Indication: ANALGESIC THERAPY
     Dosage: UNK
     Route: 048
     Dates: start: 2002, end: 2002
  13. CODEINE PHOSPHATE HYDRATE [Interacting]
     Active Substance: CODEINE PHOSPHATE
     Indication: SEROTONIN SYNDROME
     Dosage: UNK
     Route: 048
     Dates: start: 2008, end: 2008
  14. CODEINE PHOSPHATE HYDRATE [Interacting]
     Active Substance: CODEINE PHOSPHATE
     Dosage: UNK UNK, QD
     Route: 048
     Dates: start: 20110224, end: 20110410
  15. SEROXAT [Interacting]
     Active Substance: PAROXETINE HYDROCHLORIDE
     Indication: DEPRESSION
     Dosage: 20MG THREE TIMES PER DAY (60 MILLIGRAM, QD)
     Route: 048
     Dates: start: 19990801, end: 201105
  16. SEROXAT [Interacting]
     Active Substance: PAROXETINE HYDROCHLORIDE
     Dosage: QD (20 MG 3 TIMES PER DAY)
     Route: 048
     Dates: start: 19990801, end: 201105
  17. AMITRIPTYLINE [Interacting]
     Active Substance: AMITRIPTYLINE
     Indication: MUSCLE SPASMS
     Dosage: UNK
  18. AMITRIPTYLINE [Interacting]
     Active Substance: AMITRIPTYLINE
     Indication: SEROTONIN SYNDROME
     Dosage: UNK
     Route: 065
  19. PHOSPHORUS [Suspect]
     Active Substance: PHOSPHORUS
     Indication: PRODUCT USED FOR UNKNOWN INDICATION
     Dosage: UNK
     Route: 065
  20. MIRTAZAPINE. [Interacting]
     Active Substance: MIRTAZAPINE
     Dosage: 20 MILLIGRAM, BID
     Route: 048
  21. PAROXETINE. [Interacting]
     Active Substance: PAROXETINE
     Dosage: 40 MILLIGRAM, QD
     Route: 048
     Dates: start: 201105, end: 20110706
  22. TRAMADOL. [Interacting]
     Active Substance: TRAMADOL
     Dosage: 8 MG, QD
     Route: 065
     Dates: start: 20110725
  23. CODEINE PHOSPHATE HYDRATE [Interacting]
     Active Substance: CODEINE PHOSPHATE
     Dosage: 1 DOSAGE FORM, QD
     Route: 048
     Dates: start: 20110615, end: 20110723
  24. SEROXAT [Interacting]
     Active Substance: PAROXETINE HYDROCHLORIDE
     Dosage: UNK
     Route: 048
     Dates: start: 201012
  25. SEROXAT [Interacting]
     Active Substance: PAROXETINE HYDROCHLORIDE
     Dosage: 40 MILLIGRAM, QD
     Route: 048
     Dates: start: 201105, end: 20110706
  26. SEROXAT [Interacting]
     Active Substance: PAROXETINE HYDROCHLORIDE
     Dosage: 20 MILLIGRAM, TID
     Route: 048
     Dates: start: 1997
  27. DIAZEPAM. [Interacting]
     Active Substance: DIAZEPAM
     Dosage: 8 MILLIGRAM, QD
     Route: 048
     Dates: start: 20110725
  28. DIAZEPAM. [Interacting]
     Active Substance: DIAZEPAM
     Dosage: UNK
     Route: 048
     Dates: start: 20110725
  29. OMEPRAZOLE. [Interacting]
     Active Substance: OMEPRAZOLE
     Dosage: 20 MG,QD
     Dates: start: 20110525
  30. MIRTAZAPINE. [Interacting]
     Active Substance: MIRTAZAPINE
     Dosage: 30 MILLIGRAM, QD
     Route: 048
     Dates: start: 20100923, end: 20101108
  31. PAROXETINE. [Interacting]
     Active Substance: PAROXETINE
     Dosage: 20 MILLIGRAM, TID/ 60 MG QD
     Dates: start: 1997, end: 201105
  32. PAROXETINE. [Interacting]
     Active Substance: PAROXETINE
     Dosage: 20 MILLIGRAM, TID
     Route: 048
     Dates: start: 1997
  33. TRAMADOL. [Interacting]
     Active Substance: TRAMADOL
     Indication: ANALGESIC THERAPY
     Dosage: UNK
  34. TRAMADOL. [Interacting]
     Active Substance: TRAMADOL
     Dosage: 1 DOSAGE FORM, QD
     Route: 048
     Dates: start: 20081201, end: 20101210
  35. TRAMADOL. [Interacting]
     Active Substance: TRAMADOL
     Dosage: 4 CYCLICAL QD
     Route: 048
     Dates: start: 20080722
  36. PROCYCLIDINE [Interacting]
     Active Substance: PROCYCLIDINE
     Dosage: 20 MILLIGRAM
     Route: 048
     Dates: start: 20110324, end: 20110506
  37. CLONAZEPAM. [Interacting]
     Active Substance: CLONAZEPAM
     Indication: SEDATION
     Dosage: UNSURE
     Route: 048
  38. LORAZEPAM. [Interacting]
     Active Substance: LORAZEPAM
     Dosage: 1 MG,UNK
     Route: 048
     Dates: start: 20110224, end: 20110410
  39. SEROXAT [Interacting]
     Active Substance: PAROXETINE HYDROCHLORIDE
     Dosage: UNK
     Route: 048
     Dates: start: 1999
  40. AMITRIPTYLINE [Interacting]
     Active Substance: AMITRIPTYLINE
     Dosage: 25 MG,HS (25 MILLIGRAM, QD)
     Route: 065
  41. PAROXETINE. [Interacting]
     Active Substance: PAROXETINE
     Dosage: 60 MG, QD (20 MG THREE TIMES A DAY)
     Route: 048
  42. TRAMADOL. [Interacting]
     Active Substance: TRAMADOL
     Indication: NECK PAIN
     Dosage: 4 DOSAGE FORM, QD
     Route: 048
     Dates: start: 20080722
  43. TRAMADOL. [Interacting]
     Active Substance: TRAMADOL
     Dosage: 4 CYCLICAL, QD, 50?100 MG QD
     Route: 048
     Dates: start: 20101201, end: 20101210
  44. QUETIAPINE. [Interacting]
     Active Substance: QUETIAPINE
     Indication: PSYCHOTIC DISORDER
     Dosage: 300 MILLIGRAM
     Route: 048
  45. PROCYCLIDINE [Interacting]
     Active Substance: PROCYCLIDINE
     Dosage: 5 MILLIGRAM, QD
     Route: 048
     Dates: start: 20110503, end: 20110510
  46. LORAZEPAM. [Interacting]
     Active Substance: LORAZEPAM
     Dosage: 1 MG,UNK
     Dates: start: 20110224, end: 20110410
  47. SEROXAT [Interacting]
     Active Substance: PAROXETINE HYDROCHLORIDE
     Dosage: 20 MILLIGRAM, QD
     Route: 048
     Dates: start: 201105, end: 20110706
  48. DIAZEPAM. [Interacting]
     Active Substance: DIAZEPAM
     Dosage: 20 MG, QD 5 MILLIGRAM, QID (5 MG QDS AND NOW ON
     Route: 048
     Dates: start: 20110725
  49. DIAZEPAM. [Interacting]
     Active Substance: DIAZEPAM
     Dosage: 20 MILLIGRAM, QID
     Route: 065
     Dates: start: 20110725
  50. OMEPRAZOLE. [Suspect]
     Active Substance: OMEPRAZOLE
     Indication: DYSPEPSIA
     Dosage: 20 MG, QD
     Route: 048
  51. TRAMADOL. [Interacting]
     Active Substance: TRAMADOL
     Dosage: 5 MILLIGRAM, QD
     Route: 044
     Dates: start: 1995, end: 1995
  52. LORAZEPAM. [Interacting]
     Active Substance: LORAZEPAM
     Dosage: 1 MG,QD
     Route: 048
     Dates: start: 20110523, end: 20110627
  53. LORAZEPAM. [Interacting]
     Active Substance: LORAZEPAM
     Dosage: 4 MILLIGRAM, QD
     Route: 048
     Dates: start: 20110523, end: 20110627
  54. DOMPERIDONE [Interacting]
     Active Substance: DOMPERIDONE
     Dosage: UNK
     Route: 048
  55. QUETIAPINE. [Interacting]
     Active Substance: QUETIAPINE
     Dosage: 300 MILLIGRAM
     Route: 048
     Dates: start: 20110224, end: 20110506
  56. LORAZEPAM. [Interacting]
     Active Substance: LORAZEPAM
     Indication: SEDATION
     Dosage: UNK
  57. AMITRIPTYLINE [Interacting]
     Active Substance: AMITRIPTYLINE
     Indication: NEURALGIA
     Dosage: 25 MG,HS (25 MILLIGRAM, QD)
     Route: 065
     Dates: start: 20110810
  58. DIAZEPAM. [Interacting]
     Active Substance: DIAZEPAM
     Indication: MUSCLE SPASMS
     Dosage: 8 MILLIGRAM, QD
     Route: 065
  59. DIAZEPAM. [Interacting]
     Active Substance: DIAZEPAM
     Dosage: 5 MILLIGRAM, QID
     Route: 048
     Dates: start: 20110725
  60. DOMPERIDONE [Interacting]
     Active Substance: DOMPERIDONE
     Indication: PRODUCT USED FOR UNKNOWN INDICATION
     Dosage: UNK
     Route: 065
  61. MIRTAZAPINE. [Interacting]
     Active Substance: MIRTAZAPINE
     Dosage: 30 MILLIGRAM, QD
     Route: 048
     Dates: start: 20101007, end: 20101012
  62. MIRTAZAPINE. [Interacting]
     Active Substance: MIRTAZAPINE
     Dosage: UNK UNK, QD
     Route: 048
     Dates: start: 20100923, end: 20101108
  63. PAROXETINE. [Interacting]
     Active Substance: PAROXETINE
     Indication: POST-TRAUMATIC STRESS DISORDER
     Dosage: UNK
  64. TRAMADOL. [Interacting]
     Active Substance: TRAMADOL
     Dosage: 5 MILLIGRAM, QD
     Route: 048
     Dates: start: 1995, end: 1996
  65. PROCYCLIDINE [Interacting]
     Active Substance: PROCYCLIDINE
     Indication: OCULOGYRIC CRISIS
     Dosage: 5 MILLIGRAM, QD
     Route: 048
     Dates: start: 1995, end: 1995
  66. PROCYCLIDINE [Interacting]
     Active Substance: PROCYCLIDINE
     Dosage: 15 MILLIGRAM, QD
     Route: 048
     Dates: start: 20110503, end: 20110510
  67. CODEINE PHOSPHATE HYDRATE [Interacting]
     Active Substance: CODEINE PHOSPHATE
     Dosage: UNK
     Route: 048
     Dates: start: 20110615
  68. SEROXAT [Interacting]
     Active Substance: PAROXETINE HYDROCHLORIDE
     Dosage: 20 MG INTERRUPTED
     Route: 048
     Dates: start: 1997
  69. DIAZEPAM. [Concomitant]
     Active Substance: DIAZEPAM
     Dosage: UNK

REACTIONS (97)
  - Muscle spasms [Not Recovered/Not Resolved]
  - Dyspnoea [Unknown]
  - Confusional state [Not Recovered/Not Resolved]
  - Mydriasis [Unknown]
  - Derealisation [Not Recovered/Not Resolved]
  - Dyskinesia [Unknown]
  - Pyrexia [Unknown]
  - Drug interaction [Unknown]
  - Exposure during pregnancy [Unknown]
  - Mania [Unknown]
  - Musculoskeletal stiffness [Unknown]
  - Feeling jittery [Unknown]
  - Sleep disorder [Unknown]
  - Visual impairment [Unknown]
  - Menstruation irregular [Unknown]
  - Feeling of body temperature change [Unknown]
  - Incontinence [Not Recovered/Not Resolved]
  - Speech disorder [Unknown]
  - Hypoaesthesia [Not Recovered/Not Resolved]
  - Mouth swelling [Unknown]
  - Tinnitus [Unknown]
  - Paraesthesia [Unknown]
  - Dystonia [Unknown]
  - Pallor [Unknown]
  - Restlessness [Unknown]
  - Delirium [Unknown]
  - Hyperhidrosis [Unknown]
  - Dissociation [Not Recovered/Not Resolved]
  - Hypoaesthesia oral [Unknown]
  - Heart rate increased [Unknown]
  - Fatigue [Unknown]
  - Myalgia [Unknown]
  - Suicidal ideation [Not Recovered/Not Resolved]
  - Swollen tongue [Unknown]
  - Condition aggravated [Unknown]
  - Drug withdrawal syndrome [Unknown]
  - Muscle rigidity [Unknown]
  - Agitation [Unknown]
  - Somnolence [Not Recovered/Not Resolved]
  - Limb injury [Unknown]
  - Tremor [Not Recovered/Not Resolved]
  - Arthralgia [Unknown]
  - Insomnia [Unknown]
  - Urinary retention [Unknown]
  - Toxicity to various agents [Unknown]
  - Neuroleptic malignant syndrome [Unknown]
  - Menstrual disorder [Unknown]
  - Mood swings [Unknown]
  - Vomiting [Unknown]
  - Anxiety [Unknown]
  - Premature labour [Unknown]
  - Emotional disorder [Unknown]
  - Lip swelling [Unknown]
  - Eye pain [Unknown]
  - Skin discolouration [Not Recovered/Not Resolved]
  - Diarrhoea [Unknown]
  - Parosmia [Unknown]
  - Irritability [Unknown]
  - H1N1 influenza [Unknown]
  - Sensory loss [Unknown]
  - Hyperchlorhydria [Unknown]
  - Cogwheel rigidity [Unknown]
  - Pupillary light reflex tests abnormal [Unknown]
  - Disorientation [Not Recovered/Not Resolved]
  - Aphasia [Not Recovered/Not Resolved]
  - Gastric pH decreased [Unknown]
  - Therapeutic product ineffective [Unknown]
  - Headache [Unknown]
  - Feeling of despair [Unknown]
  - Disturbance in attention [Unknown]
  - Muscle disorder [Unknown]
  - Decreased appetite [Unknown]
  - Dizziness [Unknown]
  - Blood sodium decreased [Unknown]
  - Depersonalisation/derealisation disorder [Not Recovered/Not Resolved]
  - Psychotic disorder [Recovered/Resolved]
  - Facial paralysis [Unknown]
  - Drooling [Unknown]
  - Serotonin syndrome [Not Recovered/Not Resolved]
  - Tachycardia [Unknown]
  - Restless legs syndrome [Not Recovered/Not Resolved]
  - Nightmare [Unknown]
  - Contusion [Unknown]
  - Asthenia [Unknown]
  - Depression [Unknown]
  - Seizure [Unknown]
  - Pruritus [Unknown]
  - Illness [Unknown]
  - Balance disorder [Unknown]
  - Vision blurred [Unknown]
  - Swelling face [Unknown]
  - Schizophrenia [Unknown]
  - Gait disturbance [Unknown]
  - Cyanosis [Unknown]
  - Paralysis [Unknown]
  - Hallucinations, mixed [Unknown]
  - Pain [Unknown]

NARRATIVE: CASE EVENT DATE: 2003
